FAERS Safety Report 18595363 (Version 1)
Quarter: 2020Q4

REPORT INFORMATION
  Report Type: Spontaneous
  Country: US (occurrence: US)
  Receive Date: 20201209
  Receipt Date: 20201209
  Transmission Date: 20210114
  Serious: Yes (Other)
  Sender: FDA-Public Use
  Company Number: None

PATIENT
  Age: 39 Year
  Sex: Male
  Weight: 54.9 kg

DRUGS (1)
  1. KRATOM [Suspect]
     Active Substance: HERBALS\MITRAGYNINE
     Indication: SUBSTANCE USE
     Dosage: ?          OTHER FREQUENCY:DAILY;?

REACTIONS (5)
  - Drug withdrawal syndrome [None]
  - Abnormal loss of weight [None]
  - Insomnia [None]
  - Drug dependence [None]
  - Toxicity to various agents [None]

NARRATIVE: CASE EVENT DATE: 20201204
